FAERS Safety Report 6349248-X (Version None)
Quarter: 2009Q3

REPORT INFORMATION
  Report Type: 
  Country: None (occurrence: None)
  Receive Date: 20090911
  Receipt Date: 20090902
  Transmission Date: 20100115
  Serious: Yes (Hospitalization, Congenital Anomaly)
  Sender: FDA-Public Use
  Company Number: A0748056A

PATIENT
  Sex: Male
  Weight: 4.8 kg

DRUGS (10)
  1. PAXIL [Suspect]
     Indication: DEPRESSION
     Dosage: 20MG TWICE PER DAY
     Dates: start: 20060101
  2. PAROXETINE HCL [Suspect]
     Indication: DEPRESSION
     Dosage: 20MG TWICE PER DAY
     Dates: start: 20060101
  3. VITAMIN AND MINERAL PRENATAL SUPPLEMENT W/ FOLIC ACID CAP [Concomitant]
  4. SINUS MEDICATION [Concomitant]
  5. VALTREX [Concomitant]
     Dates: start: 20061101
  6. MACROBID [Concomitant]
     Dates: start: 20061101
  7. BUPROPION HYDROCHLORIDE [Concomitant]
     Dosage: 200MG PER DAY
     Dates: start: 20061001
  8. VISTARIL [Concomitant]
     Dates: start: 20061101
  9. ERYTHROMYCIN [Concomitant]
     Dates: start: 20070307
  10. VICODIN [Concomitant]
     Dates: start: 20070307

REACTIONS (6)
  - ANKYLOGLOSSIA CONGENITAL [None]
  - BICUSPID AORTIC VALVE [None]
  - CARDIAC MURMUR [None]
  - DRUG EXPOSURE DURING PREGNANCY [None]
  - PATENT DUCTUS ARTERIOSUS [None]
  - TRANSIENT TACHYPNOEA OF THE NEWBORN [None]
